FAERS Safety Report 23397747 (Version 3)
Quarter: 2024Q1

REPORT INFORMATION
  Report Type: Spontaneous
  Country: ES (occurrence: ES)
  Receive Date: 20240112
  Receipt Date: 20240209
  Transmission Date: 20240410
  Serious: Yes (Hospitalization)
  Sender: FDA-Public Use
  Company Number: ES-GILEAD-2022-0591627

PATIENT
  Age: 61 Year
  Sex: Male
  Weight: 111 kg

DRUGS (144)
  1. CYCLOPHOSPHAMIDE [Suspect]
     Active Substance: CYCLOPHOSPHAMIDE
     Indication: Mantle cell lymphoma
     Dosage: 1077, 25-AUG-2022
     Route: 065
     Dates: end: 20220825
  2. CYCLOPHOSPHAMIDE [Suspect]
     Active Substance: CYCLOPHOSPHAMIDE
     Dosage: 1077, 26-AUG-2022
     Route: 065
     Dates: end: 20220826
  3. CYCLOPHOSPHAMIDE [Suspect]
     Active Substance: CYCLOPHOSPHAMIDE
     Dosage: 1077, 27-AUG-2022
     Route: 065
     Dates: end: 20220827
  4. CYTARABINE [Suspect]
     Active Substance: CYTARABINE
     Indication: Mantle cell lymphoma
     Dosage: 1, 29-JUL-2022
     Route: 065
     Dates: end: 20220730
  5. FLUDARABINE [Suspect]
     Active Substance: FLUDARABINE PHOSPHATE
     Indication: Mantle cell lymphoma
     Dosage: 65 UNK, 25-AUG-2022
     Route: 065
     Dates: end: 20220825
  6. FLUDARABINE [Suspect]
     Active Substance: FLUDARABINE PHOSPHATE
     Dosage: 65 UNK, 26-AUG-2022
     Route: 065
     Dates: end: 20220826
  7. FLUDARABINE [Suspect]
     Active Substance: FLUDARABINE PHOSPHATE
     Dosage: 65 UNK, 27-AUG-2022
     Route: 065
     Dates: end: 20220827
  8. MESNA [Suspect]
     Active Substance: MESNA
     Indication: Mantle cell lymphoma
     Dosage: 538.52
     Route: 065
     Dates: start: 20220827, end: 20220827
  9. MESNA [Suspect]
     Active Substance: MESNA
     Dosage: 538.52
     Route: 065
     Dates: start: 20220825, end: 20220825
  10. MESNA [Suspect]
     Active Substance: MESNA
     Dosage: 538.52
     Route: 065
     Dates: start: 20220826, end: 20220826
  11. MESNA [Suspect]
     Active Substance: MESNA
     Dosage: 538.52
     Route: 065
     Dates: start: 20220828, end: 20220828
  12. FOLIC ACID [Concomitant]
     Active Substance: FOLIC ACID
     Indication: Product used for unknown indication
     Dosage: 5,MG,DAILY
     Route: 048
     Dates: start: 20220729, end: 20220823
  13. ACYCLOVIR [Concomitant]
     Active Substance: ACYCLOVIR
     Dosage: 200,MG,TWICE DAILY
     Route: 048
     Dates: start: 20220825, end: 20220904
  14. ACYCLOVIR [Concomitant]
     Active Substance: ACYCLOVIR
     Indication: Product used for unknown indication
     Dosage: 800,MG,TWICE DAILY
     Route: 048
     Dates: start: 20220905, end: 20221024
  15. ASPIRIN [Concomitant]
     Active Substance: ASPIRIN
     Dosage: 100,MG,DAILY
     Route: 048
     Dates: start: 20220824, end: 20220830
  16. ASPIRIN [Concomitant]
     Active Substance: ASPIRIN
     Dosage: 100,MG,DAILY
     Route: 048
     Dates: start: 2013, end: 20220728
  17. ASPIRIN [Concomitant]
     Active Substance: ASPIRIN
     Dosage: 100,MG,DAILY
     Route: 048
     Dates: start: 2013
  18. ASPIRIN [Concomitant]
     Active Substance: ASPIRIN
     Indication: Product used for unknown indication
     Dosage: 100,MG,ONCE
     Route: 048
     Dates: start: 20220806, end: 20220806
  19. ASPIRIN [Concomitant]
     Active Substance: ASPIRIN
     Dosage: 100,MG,ONCE
     Route: 048
     Dates: start: 20220801, end: 20220801
  20. Albumine humaine 20% biotest [Concomitant]
     Dosage: 10,G,DAILY
     Route: 042
     Dates: start: 20220830, end: 20220902
  21. Albumine humaine 20% biotest [Concomitant]
     Indication: Product used for unknown indication
     Dosage: 10,G,THREE TIMES DAILY
     Route: 042
     Dates: start: 20220825, end: 20220829
  22. Albumine humaine 20% biotest [Concomitant]
     Dosage: 10,G,THREE TIMES DAILY
     Route: 042
     Dates: start: 20220913, end: 20220921
  23. Albumine humaine 20% biotest [Concomitant]
     Indication: Product used for unknown indication
     Dosage: 10,G,TWICE DAILY
     Route: 042
     Dates: start: 20220728, end: 20220731
  24. Albumine humaine 20% biotest [Concomitant]
     Dosage: 10,G,TWICE DAILY
     Route: 042
     Dates: start: 20220912, end: 20220912
  25. Albumine humaine 20% biotest [Concomitant]
     Dosage: 10,G,DAILY
     Route: 042
     Dates: start: 20220830, end: 20220902
  26. Albumine humaine 20% biotest [Concomitant]
     Dosage: 10,G,THREE TIMES DAILY
     Route: 042
     Dates: start: 20220825, end: 20220829
  27. Albumine humaine 20% biotest [Concomitant]
     Dosage: 10,G,THREE TIMES DAILY
     Route: 042
     Dates: start: 20220913, end: 20220921
  28. ALDACTONE [Concomitant]
     Active Substance: SPIRONOLACTONE
     Dosage: 100,MG,DAILY
     Route: 048
     Dates: start: 20220812, end: 20220823
  29. ALDACTONE [Concomitant]
     Active Substance: SPIRONOLACTONE
     Dosage: 100,MG,DAILY
     Route: 048
     Dates: start: 20220827, end: 20220902
  30. ALDACTONE [Concomitant]
     Active Substance: SPIRONOLACTONE
     Dosage: 100,MG,DAILY
     Route: 048
     Dates: end: 20220728
  31. ALDACTONE [Concomitant]
     Active Substance: SPIRONOLACTONE
     Dosage: 200,MG,DAILY
     Route: 048
     Dates: start: 20220810, end: 20220811
  32. ALDACTONE [Concomitant]
     Active Substance: SPIRONOLACTONE
     Indication: Product used for unknown indication
     Dosage: 200,MG,ONCE
     Route: 048
     Dates: start: 20220806, end: 20220806
  33. ALDACTONE [Concomitant]
     Active Substance: SPIRONOLACTONE
     Dosage: 200,MG,ONCE
     Route: 048
     Dates: start: 20220802, end: 20220802
  34. ALDACTONE [Concomitant]
     Active Substance: SPIRONOLACTONE
     Dosage: 200,MG,ONCE
     Route: 042
     Dates: start: 20220801, end: 20220801
  35. ALLOPURINOL [Concomitant]
     Active Substance: ALLOPURINOL
     Dosage: 100,MG,ONCE
     Route: 048
     Dates: start: 20220824, end: 20220824
  36. ALLOPURINOL [Concomitant]
     Active Substance: ALLOPURINOL
     Indication: Product used for unknown indication
     Dosage: 300,MG,DAILY
     Route: 048
  37. ALLOPURINOL [Concomitant]
     Active Substance: ALLOPURINOL
     Dosage: 300,MG,DAILY
     Route: 048
     Dates: start: 20220810, end: 20220823
  38. ALLOPURINOL [Concomitant]
     Active Substance: ALLOPURINOL
     Dosage: 300,MG,DAILY
     Route: 048
     Dates: start: 20220820, end: 20221017
  39. ALLOPURINOL [Concomitant]
     Active Substance: ALLOPURINOL
     Dosage: 300,MG,DAILY
     Route: 048
     Dates: end: 20220728
  40. ALLOPURINOL [Concomitant]
     Active Substance: ALLOPURINOL
     Dosage: 300,MG,DAILY
     Route: 048
  41. ALLOPURINOL [Concomitant]
     Active Substance: ALLOPURINOL
     Dosage: 300,MG,ONCE
     Route: 048
     Dates: start: 20220801, end: 20220801
  42. ALLOPURINOL [Concomitant]
     Active Substance: ALLOPURINOL
     Dosage: 300,MG,ONCE
     Route: 048
     Dates: start: 20220806, end: 20220806
  43. ALLOPURINOL [Concomitant]
     Active Substance: ALLOPURINOL
     Dosage: 300,MG,ONCE
     Route: 048
     Dates: start: 20220808, end: 20220808
  44. ALOCLAIR PLUS [Concomitant]
     Indication: Product used for unknown indication
     Dosage: 10,ML,THREE TIMES DAILY
     Route: 050
     Dates: start: 20220825, end: 20220923
  45. ATORVASTATIN [Concomitant]
     Active Substance: ATORVASTATIN
     Indication: Product used for unknown indication
     Dosage: 10,MG,DAILY
     Route: 048
  46. BEMIPARIN [Concomitant]
     Active Substance: BEMIPARIN
     Indication: Product used for unknown indication
     Dosage: 2500,IU,DAILY
     Route: 058
     Dates: start: 20220729, end: 20220806
  47. BEMIPARIN [Concomitant]
     Active Substance: BEMIPARIN
     Dosage: 3500,OTHER,DAILY
     Route: 058
     Dates: start: 20220823, end: 20220901
  48. CALCIUM [Concomitant]
     Active Substance: CALCIUM
     Indication: Product used for unknown indication
     Dosage: ND,MG,ONCE
     Route: 042
     Dates: start: 20220628, end: 20220628
  49. Calcium spofa [Concomitant]
     Indication: Product used for unknown indication
     Dosage: 1,OTHER,DAILY
     Route: 042
     Dates: start: 20220826, end: 20220827
  50. Clorhexidina [Concomitant]
     Indication: Product used for unknown indication
     Dosage: 15,ML,THREE TIMES DAILY
     Route: 050
     Dates: start: 20220825, end: 20221024
  51. DE MAGNESIA [Concomitant]
     Indication: Product used for unknown indication
     Dosage: 2.4,G,TWICE DAILY
     Route: 048
     Dates: start: 20220827, end: 20220828
  52. BISOPROLOL FUMARATE [Concomitant]
     Active Substance: BISOPROLOL FUMARATE
     Indication: Product used for unknown indication
     Dosage: 2.5,MG,DAILY
     Route: 048
     Dates: end: 20221023
  53. BISOPROLOL FUMARATE [Concomitant]
     Active Substance: BISOPROLOL FUMARATE
     Dosage: 2.5,MG,DAILY
     Route: 048
     Dates: end: 20221023
  54. BISOPROLOL FUMARATE [Concomitant]
     Active Substance: BISOPROLOL FUMARATE
     Dosage: 2.5,MG,DAILY
     Route: 048
     Dates: end: 20221023
  55. DEXAMETHASONE [Concomitant]
     Active Substance: DEXAMETHASONE
     Dosage: 1,OTHER,THREE TIMES DAILY
     Route: 050
     Dates: start: 20220729, end: 20220730
  56. DEXAMETHASONE [Concomitant]
     Active Substance: DEXAMETHASONE
     Dosage: 10,MG,FOUR TIMES DAILY
     Route: 042
     Dates: start: 20220918, end: 20220919
  57. DEXAMETHASONE [Concomitant]
     Active Substance: DEXAMETHASONE
     Dosage: 10,MG,ONCE
     Route: 042
     Dates: start: 20220922, end: 20220922
  58. DEXAMETHASONE [Concomitant]
     Active Substance: DEXAMETHASONE
     Dosage: 10,MG,THREE TIMES DAILY
     Route: 042
     Dates: start: 20220920, end: 20220920
  59. DEXAMETHASONE [Concomitant]
     Active Substance: DEXAMETHASONE
     Dosage: 10,MG,TWICE DAILY
     Route: 042
     Dates: start: 20220921, end: 20220921
  60. DEXAMETHASONE [Concomitant]
     Active Substance: DEXAMETHASONE
     Indication: Product used for unknown indication
     Dosage: 4,MG,DAILY
     Route: 048
     Dates: start: 20220701, end: 20220707
  61. ENALAPRIL [Concomitant]
     Active Substance: ENALAPRIL
     Indication: Product used for unknown indication
     Dosage: 5,MG,DAILY
     Route: 048
     Dates: end: 20220728
  62. ENALAPRIL [Concomitant]
     Active Substance: ENALAPRIL
     Dosage: 5,MG,DAILY
     Route: 048
  63. ENALAPRIL [Concomitant]
     Active Substance: ENALAPRIL
     Dosage: 5,MG,DAILY
     Route: 048
  64. EVUSHELD [Concomitant]
     Active Substance: CILGAVIMAB\TIXAGEVIMAB
     Indication: Product used for unknown indication
     Dosage: 2,OTHER,ONCE
     Route: 030
     Dates: start: 202207, end: 202207
  65. FASTURTEC [Concomitant]
     Active Substance: RASBURICASE
     Indication: Product used for unknown indication
     Dosage: 19,MG,DAILY
     Route: 042
     Dates: start: 20220825, end: 20220828
  66. FASTURTEC [Concomitant]
     Active Substance: RASBURICASE
     Dosage: 20,MG,DAILY
     Route: 042
     Dates: start: 20220729, end: 20220730
  67. FUROSEMIDE [Concomitant]
     Active Substance: FUROSEMIDE
     Dosage: 20,MG,DAILY
     Route: 042
     Dates: start: 20220825, end: 20220913
  68. FUROSEMIDE [Concomitant]
     Active Substance: FUROSEMIDE
     Dosage: 20,MG,DAILY
     Route: 048
     Dates: start: 20220801, end: 20220802
  69. FUROSEMIDE [Concomitant]
     Active Substance: FUROSEMIDE
     Dosage: 20,MG,ONCE
     Route: 042
     Dates: start: 20220830, end: 20220830
  70. FUROSEMIDE [Concomitant]
     Active Substance: FUROSEMIDE
     Dosage: 20,MG,ONCE
     Route: 042
     Dates: start: 20220905, end: 20220905
  71. FUROSEMIDE [Concomitant]
     Active Substance: FUROSEMIDE
     Dosage: 20,MG,ONCE
     Route: 042
     Dates: start: 20220914, end: 20220914
  72. FUROSEMIDE [Concomitant]
     Active Substance: FUROSEMIDE
     Dosage: 20,MG,ONCE
     Route: 042
     Dates: start: 20220920, end: 20220920
  73. FUROSEMIDE [Concomitant]
     Active Substance: FUROSEMIDE
     Dosage: 20,MG,ONCE
     Route: 048
     Dates: start: 20220728, end: 20220728
  74. FUROSEMIDE [Concomitant]
     Active Substance: FUROSEMIDE
     Dosage: 20,MG,THREE TIMES DAILY
     Route: 042
     Dates: start: 20220914, end: 20221008
  75. FUROSEMIDE [Concomitant]
     Active Substance: FUROSEMIDE
     Indication: Product used for unknown indication
     Dosage: 250,MG,DAILY
     Route: 042
     Dates: start: 20220729, end: 20220731
  76. FUROSEMIDE [Concomitant]
     Active Substance: FUROSEMIDE
     Dosage: 40,MG,DAILY
     Route: 048
     Dates: start: 202207, end: 20220728
  77. FUROSEMIDE [Concomitant]
     Active Substance: FUROSEMIDE
     Dosage: 40,MG,ONCE
     Route: 042
     Dates: start: 20220813, end: 20220828
  78. FUROSEMIDE [Concomitant]
     Active Substance: FUROSEMIDE
     Dosage: 40,MG,TWICE DAILY
     Route: 042
     Dates: start: 20220829, end: 20220830
  79. FUROSEMIDE [Concomitant]
     Active Substance: FUROSEMIDE
     Dosage: 40,MG,TWICE DAILY
     Route: 048
     Dates: start: 20220801, end: 20220812
  80. DEXTROSE [Concomitant]
     Active Substance: DEXTROSE\DEXTROSE MONOHYDRATE
     Indication: Product used for unknown indication
     Dosage: 500,ML,TWICE DAILY
     Route: 042
     Dates: start: 20220825, end: 20220828
  81. Irradiated platelet concentrate-leukocytes reduced [Concomitant]
     Dosage: 1,OTHER,ONCE
     Route: 042
     Dates: start: 20220808, end: 20220808
  82. Irradiated platelet concentrate-leukocytes reduced [Concomitant]
     Dosage: 1,OTHER,ONCE
     Route: 042
     Dates: start: 20220809, end: 20220809
  83. Irradiated platelet concentrate-leukocytes reduced [Concomitant]
     Dosage: 1,OTHER,ONCE
     Route: 042
     Dates: start: 20220810, end: 20220810
  84. Irradiated platelet concentrate-leukocytes reduced [Concomitant]
     Dosage: 1,OTHER,ONCE
     Route: 042
     Dates: start: 20220812, end: 20220812
  85. Irradiated platelet concentrate-leukocytes reduced [Concomitant]
     Dosage: 1,OTHER,ONCE
     Route: 042
     Dates: start: 20220905, end: 20220905
  86. Irradiated platelet concentrate-leukocytes reduced [Concomitant]
     Dosage: 1,OTHER,ONCE
     Route: 042
     Dates: start: 20220912, end: 20220912
  87. Irradiated platelet concentrate-leukocytes reduced [Concomitant]
     Dosage: 1,OTHER,ONCE
     Route: 042
     Dates: start: 20220913, end: 20220913
  88. Irradiated platelet concentrate-leukocytes reduced [Concomitant]
     Dosage: 1,OTHER,ONCE
     Route: 042
     Dates: start: 20220914, end: 20220914
  89. Irradiated platelet concentrate-leukocytes reduced [Concomitant]
     Dosage: 1,OTHER,ONCE
     Route: 042
     Dates: start: 20220915, end: 20220915
  90. Irradiated platelet concentrate-leukocytes reduced [Concomitant]
     Dosage: 1,OTHER,ONCE
     Route: 042
     Dates: start: 20220916, end: 20220916
  91. Irradiated platelet concentrate-leukocytes reduced [Concomitant]
     Dosage: 1,OTHER,ONCE
     Route: 042
     Dates: start: 20220917, end: 20220917
  92. Irradiated platelet concentrate-leukocytes reduced [Concomitant]
     Dosage: 1,OTHER,ONCE
     Route: 042
     Dates: start: 20220919, end: 20220919
  93. Irradiated platelet concentrate-leukocytes reduced [Concomitant]
     Dosage: 1,OTHER,ONCE
     Route: 042
     Dates: start: 20220920, end: 20220920
  94. Irradiated platelet concentrate-leukocytes reduced [Concomitant]
     Dosage: 1,OTHER,ONCE
     Route: 042
     Dates: start: 20220921, end: 20220921
  95. Irradiated platelet concentrate-leukocytes reduced [Concomitant]
     Dosage: 1,OTHER,ONCE
     Route: 042
     Dates: start: 20220922, end: 20220922
  96. Irradiated platelet concentrate-leukocytes reduced [Concomitant]
     Indication: Product used for unknown indication
     Dosage: 1,OTHER,TWICE DAILY
     Route: 042
     Dates: start: 20220918, end: 20220918
  97. LACTULOSE [Concomitant]
     Active Substance: LACTULOSE
     Dosage: 10,G,DAILY
     Route: 048
     Dates: start: 202207, end: 20220812
  98. LACTULOSE [Concomitant]
     Active Substance: LACTULOSE
     Dosage: 10,G,TWICE DAILY
     Route: 048
     Dates: start: 20220915, end: 20220915
  99. LACTULOSE [Concomitant]
     Active Substance: LACTULOSE
     Indication: Product used for unknown indication
     Dosage: 10,MG,DAILY
     Route: 048
     Dates: start: 20220909, end: 20220914
  100. LACTULOSE [Concomitant]
     Active Substance: LACTULOSE
     Dosage: 15,MG,OTHER
     Route: 048
     Dates: start: 20220813, end: 20220823
  101. MAGNESIUM SULFATE [Concomitant]
     Active Substance: MAGNESIUM SULFATE\MAGNESIUM SULFATE HEPTAHYDRATE
     Indication: Product used for unknown indication
     Dosage: 2,OTHER,DAILY
     Route: 042
     Dates: start: 20220827, end: 20220828
  102. MAGNESIUM SULFATE [Concomitant]
     Active Substance: MAGNESIUM SULFATE\MAGNESIUM SULFATE HEPTAHYDRATE
     Dosage: 2,OTHER,DAILY
     Route: 042
     Dates: start: 20220829, end: 20220830
  103. MAGNESIUM SULFATE [Concomitant]
     Active Substance: MAGNESIUM SULFATE\MAGNESIUM SULFATE HEPTAHYDRATE
     Dosage: 2,OTHER,DAILY
     Route: 042
     Dates: start: 20220916, end: 20220920
  104. MAGNESIUM SULFATE [Concomitant]
     Active Substance: MAGNESIUM SULFATE\MAGNESIUM SULFATE HEPTAHYDRATE
     Dosage: 2,OTHER,ONCE
     Route: 042
     Dates: start: 20220826, end: 20220826
  105. MAGNESIUM SULFATE [Concomitant]
     Active Substance: MAGNESIUM SULFATE\MAGNESIUM SULFATE HEPTAHYDRATE
     Dosage: 2,OTHER,ONCE
     Route: 042
     Dates: start: 20220915, end: 20220915
  106. Metoclopramida Kern Pharma [Concomitant]
     Indication: Product used for unknown indication
     Dosage: 10,MG,DAILY
     Route: 042
     Dates: start: 20220918, end: 20220919
  107. Metoclopramida Kern Pharma [Concomitant]
     Dosage: 10,MG,ONCE
     Route: 042
     Dates: start: 20220915, end: 20220915
  108. Metoclopramida Kern Pharma [Concomitant]
     Dosage: 10,MG,THREE TIMES DAILY
     Route: 042
     Dates: start: 20220729, end: 20220730
  109. MYCOSTATIN [Concomitant]
     Active Substance: NYSTATIN
     Indication: Product used for unknown indication
     Dosage: 5,ML,THREE TIMES DAILY
     Route: 050
     Dates: start: 20220825, end: 20221024
  110. NITROGLYCERIN [Concomitant]
     Active Substance: NITROGLYCERIN
     Indication: Product used for unknown indication
     Dosage: 0.4,MG,DAILY
     Route: 048
     Dates: start: 2013
  111. OMEPRAZOLE [Concomitant]
     Active Substance: OMEPRAZOLE
     Indication: Product used for unknown indication
     Dosage: 20,MG,DAILY
     Route: 048
  112. OMNILAX [Concomitant]
     Indication: Product used for unknown indication
     Dosage: 13.8,G,DAILY
     Route: 048
     Dates: start: 20220824, end: 20220828
  113. Ondansetron Ips [Concomitant]
     Indication: Product used for unknown indication
     Dosage: 8,MG,ONCE
     Route: 042
     Dates: start: 20220730, end: 20220730
  114. Ondansetron Ips [Concomitant]
     Dosage: 8,MG,THREE TIMES DAILY
     Route: 042
     Dates: start: 20220825, end: 20220828
  115. ACETAMINOPHEN [Concomitant]
     Active Substance: ACETAMINOPHEN
     Dosage: 1,G,DAILY
     Route: 042
     Dates: start: 20220825, end: 20220827
  116. ACETAMINOPHEN [Concomitant]
     Active Substance: ACETAMINOPHEN
     Dosage: 1,G,DAILY
     Route: 048
     Dates: start: 20220909, end: 20220909
  117. ACETAMINOPHEN [Concomitant]
     Active Substance: ACETAMINOPHEN
     Indication: Product used for unknown indication
     Dosage: 1,G,ONCE
     Route: 042
     Dates: start: 20220810, end: 20220810
  118. ACETAMINOPHEN [Concomitant]
     Active Substance: ACETAMINOPHEN
     Dosage: 1,G,ONCE
     Route: 042
     Dates: start: 20220915, end: 20220915
  119. PARAFINEMULSJON NAF [Concomitant]
     Indication: Product used for unknown indication
     Dosage: 15,ML,DAILY
     Route: 048
     Dates: start: 20220901, end: 20220915
  120. SODIUM CHLORIDE [Concomitant]
     Active Substance: SODIUM CHLORIDE
     Dosage: 1000,ML,DAILY
     Route: 042
     Dates: start: 20220729, end: 20220731
  121. SODIUM CHLORIDE [Concomitant]
     Active Substance: SODIUM CHLORIDE
     Dosage: 250,ML,ONCE
     Route: 042
     Dates: start: 20220801, end: 20220801
  122. SODIUM CHLORIDE [Concomitant]
     Active Substance: SODIUM CHLORIDE
     Indication: Product used for unknown indication
     Dosage: 250,ML,TWICE DAILY
     Route: 042
     Dates: start: 20220810, end: 20220811
  123. PIPERACILLIN AND TAZOBACTAM [Concomitant]
     Active Substance: PIPERACILLIN SODIUM\TAZOBACTAM SODIUM
     Indication: Product used for unknown indication
     Dosage: 4/0.5,G,FOUR TIMES DAILY
     Route: 042
     Dates: start: 20220827, end: 20220828
  124. POREKAL [Concomitant]
     Indication: Product used for unknown indication
     Dosage: 600,MG,DAILY
     Route: 048
     Dates: start: 20220811, end: 20220823
  125. POREKAL [Concomitant]
     Dosage: 8,OTHER,ONCE
     Route: 042
     Dates: start: 20220811, end: 20220811
  126. CANRENOATE POTASSIUM [Concomitant]
     Active Substance: CANRENOATE POTASSIUM
     Indication: Product used for unknown indication
     Dosage: 10 MG, QD
     Route: 042
     Dates: start: 20220810, end: 20220810
  127. HUMAN RED BLOOD CELL [Concomitant]
     Active Substance: HUMAN RED BLOOD CELL
     Indication: Product used for unknown indication
     Dosage: 1,OTHER,ONCE
     Route: 042
     Dates: start: 20220922, end: 20220922
  128. HUMAN RED BLOOD CELL [Concomitant]
     Active Substance: HUMAN RED BLOOD CELL
     Dosage: 1,OTHER,ONCE
     Route: 042
     Dates: start: 20220831, end: 20220831
  129. HUMAN RED BLOOD CELL [Concomitant]
     Active Substance: HUMAN RED BLOOD CELL
     Dosage: 1,OTHER,ONCE
     Route: 042
     Dates: start: 20220911, end: 20220911
  130. HUMAN RED BLOOD CELL [Concomitant]
     Active Substance: HUMAN RED BLOOD CELL
     Dosage: 1,OTHER,ONCE
     Route: 042
     Dates: start: 20220912, end: 20220912
  131. HUMAN RED BLOOD CELL [Concomitant]
     Active Substance: HUMAN RED BLOOD CELL
     Dosage: 1,OTHER,ONCE
     Route: 042
     Dates: start: 20220914, end: 20220914
  132. HUMAN RED BLOOD CELL [Concomitant]
     Active Substance: HUMAN RED BLOOD CELL
     Dosage: 1,OTHER,ONCE
     Route: 042
     Dates: start: 20220916, end: 20220916
  133. HUMAN RED BLOOD CELL [Concomitant]
     Active Substance: HUMAN RED BLOOD CELL
     Dosage: 1,OTHER,ONCE
     Route: 042
     Dates: start: 20220920, end: 20220920
  134. HUMAN RED BLOOD CELL [Concomitant]
     Active Substance: HUMAN RED BLOOD CELL
     Dosage: 1,OTHER,ONCE
     Route: 042
     Dates: start: 20220921, end: 20220921
  135. HUMAN RED BLOOD CELL [Concomitant]
     Active Substance: HUMAN RED BLOOD CELL
     Dosage: 2,OTHER,ONCE
     Route: 042
     Dates: start: 20220830, end: 20220830
  136. HUMAN RED BLOOD CELL [Concomitant]
     Active Substance: HUMAN RED BLOOD CELL
     Dosage: 2,OTHER,ONCE
     Route: 042
     Dates: start: 20220905, end: 20220905
  137. LEVOFLOXACIN [Concomitant]
     Active Substance: LEVOFLOXACIN
     Dosage: 500,MG,DAILY
     Route: 048
     Dates: start: 20220811, end: 20220816
  138. LEVOFLOXACIN [Concomitant]
     Active Substance: LEVOFLOXACIN
     Dosage: 500,MG,DAILY
     Route: 048
     Dates: start: 20220905, end: 20220906
  139. LEVOFLOXACIN [Concomitant]
     Active Substance: LEVOFLOXACIN
     Indication: Product used for unknown indication
     Dosage: 500,MG,TWICE DAILY
     Route: 048
     Dates: start: 20220909, end: 20220909
  140. PIPERACILLIN SODIUM\TAZOBACTAM SODIUM [Concomitant]
     Active Substance: PIPERACILLIN SODIUM\TAZOBACTAM SODIUM
     Indication: Product used for unknown indication
     Dosage: 4.5,G,FOUR TIMES DAILY
     Route: 042
     Dates: start: 20220810, end: 20220811
  141. SULFAMETHOXAZOLE\TRIMETHOPRIM [Concomitant]
     Active Substance: SULFAMETHOXAZOLE\TRIMETHOPRIM
     Indication: Product used for unknown indication
     Dosage: 160/800,MG,DAILY
     Route: 048
     Dates: start: 20220825, end: 20220830
  142. TRIVALEN [Concomitant]
     Indication: Product used for unknown indication
     Dosage: 5,MG,DAILY
     Route: 042
     Dates: start: 20220825, end: 20220827
  143. URSODIOL [Concomitant]
     Active Substance: URSODIOL
     Indication: Product used for unknown indication
     Dosage: 300,MG,FOUR TIMES DAILY
     Route: 048
     Dates: start: 20220728, end: 20221024
  144. VITAMIN K [Concomitant]
     Active Substance: PHYTONADIONE
     Indication: Product used for unknown indication
     Dosage: 10,MG,ONCE
     Route: 042
     Dates: start: 20220810, end: 20220810

REACTIONS (2)
  - Hepatic cirrhosis [Recovered/Resolved]
  - Renal impairment [Recovered/Resolved]

NARRATIVE: CASE EVENT DATE: 20220728
